FAERS Safety Report 21298885 (Version 1)
Quarter: 2022Q3

REPORT INFORMATION
  Report Type: Spontaneous
  Country: US (occurrence: None)
  Receive Date: 20220905
  Receipt Date: 20220905
  Transmission Date: 20221027
  Serious: Yes (Hospitalization)
  Sender: FDA-Public Use
  Company Number: None

PATIENT
  Age: 74 Year
  Sex: Male

DRUGS (2)
  1. HYDROCHLOROTHIAZIDE [Suspect]
     Active Substance: HYDROCHLOROTHIAZIDE
     Dates: start: 20200819, end: 20210722
  2. FUROSEMIDE [Suspect]
     Active Substance: FUROSEMIDE
     Indication: Cardiac failure congestive
     Dosage: FREQUENCY : AS NEEDED;?
     Route: 042
     Dates: start: 2021, end: 20210627

REACTIONS (2)
  - Hyponatraemia [None]
  - Cardiac failure [None]

NARRATIVE: CASE EVENT DATE: 20210623
